FAERS Safety Report 9516623 (Version 1)
Quarter: 2013Q3

REPORT INFORMATION
  Report Type: Spontaneous
  Country: IT (occurrence: IT)
  Receive Date: 20130911
  Receipt Date: 20130911
  Transmission Date: 20140515
  Serious: Yes (Other)
  Sender: FDA-Public Use
  Company Number: PHHY2013IT096162

PATIENT
  Sex: Male

DRUGS (3)
  1. AZATHIOPRINE [Suspect]
     Indication: IMMUNOSUPPRESSION
  2. CICLOSPORIN [Suspect]
     Indication: IMMUNOSUPPRESSION
  3. EVEROLIMUS [Concomitant]
     Indication: IMMUNOSUPPRESSION

REACTIONS (11)
  - Post transplant lymphoproliferative disorder [Recovered/Resolved]
  - Hodgkin^s disease [Recovered/Resolved]
  - Testicular disorder [Recovered/Resolved]
  - Pyrexia [Recovered/Resolved]
  - Headache [Recovered/Resolved]
  - Monocytosis [Recovered/Resolved]
  - Splenomegaly [Recovered/Resolved]
  - Lymphocytic infiltration [Recovered/Resolved]
  - Hypoalbuminaemia [Recovered/Resolved]
  - Haematoma [Recovered/Resolved]
  - Epstein-Barr virus infection [Recovered/Resolved]
